FAERS Safety Report 18215004 (Version 1)
Quarter: 2020Q3

REPORT INFORMATION
  Report Type: Spontaneous
  Country: US (occurrence: US)
  Receive Date: 20200831
  Receipt Date: 20200831
  Transmission Date: 20201103
  Serious: No
  Sender: FDA-Public Use
  Company Number: US-009507513-2008USA013037

PATIENT
  Age: 42 Year
  Sex: Male

DRUGS (3)
  1. SINEMET [Suspect]
     Active Substance: CARBIDOPA\LEVODOPA
     Indication: MUSCLE RIGIDITY
     Dosage: PATIENT ATTEMPTED SUICIDE BY INGESTING 20?30 TABLETS
     Route: 048
  2. SINEMET [Suspect]
     Active Substance: CARBIDOPA\LEVODOPA
     Indication: DYSTONIA
     Dosage: SUBSEQUENTLY INCREASED TO 1.5 TABLETS THREE TIMES DAILY
     Route: 048
  3. SINEMET [Suspect]
     Active Substance: CARBIDOPA\LEVODOPA
     Indication: BRADYKINESIA
     Dosage: 25/100 MG, ONE TABLET THREE TIMES DAILY,
     Route: 048

REACTIONS (1)
  - Intentional overdose [Unknown]
